FAERS Safety Report 7326083-7 (Version None)
Quarter: 2011Q1

REPORT INFORMATION
  Report Type: 
  Country: None (occurrence: None)
  Receive Date: 20110216
  Receipt Date: 20110202
  Transmission Date: 20110831
  Serious: Yes (Other)
  Sender: FDA-Public Use
  Company Number: 2011SP005586

PATIENT
  Age: 42 Year
  Sex: Female

DRUGS (2)
  1. PEG-INTRON [Suspect]
     Dosage: SC
     Route: 058
  2. RIBAVIRIN [Suspect]

REACTIONS (4)
  - DIZZINESS [None]
  - LEUKOPENIA [None]
  - ANAEMIA [None]
  - ARTHRALGIA [None]
